FAERS Safety Report 9336950 (Version 2)
Quarter: 2013Q3

REPORT INFORMATION
  Report Type: Report from Study
  Country: US (occurrence: US)
  Receive Date: 20130607
  Receipt Date: 20130723
  Transmission Date: 20140515
  Serious: Yes (Hospitalization)
  Sender: FDA-Public Use
  Company Number: US-BRISTOL-MYERS SQUIBB COMPANY-18971804

PATIENT
  Age: 32 Year
  Sex: Male
  Weight: 111.4 kg

DRUGS (4)
  1. ERBITUX [Suspect]
     Indication: SQUAMOUS CELL CARCINOMA OF HEAD AND NECK
     Dosage: 21MAY2013
     Dates: start: 20130502
  2. ADDERALL [Concomitant]
  3. CELEXA [Concomitant]
  4. LISINOPRIL [Concomitant]

REACTIONS (5)
  - Dysphagia [Unknown]
  - Dehydration [Unknown]
  - Lymphocyte count decreased [Unknown]
  - Mucosal infection [Not Recovered/Not Resolved]
  - Oral pain [Not Recovered/Not Resolved]
